FAERS Safety Report 7424154-8 (Version None)
Quarter: 2011Q2

REPORT INFORMATION
  Report Type: 
  Country: None (occurrence: None)
  Receive Date: 20110419
  Receipt Date: 20110418
  Transmission Date: 20111010
  Serious: Yes (Other)
  Sender: FDA-Public Use
  Company Number: US-PFIZER INC-2011084875

PATIENT
  Sex: Female
  Weight: 79.4 kg

DRUGS (2)
  1. ESTRADIOL [Interacting]
     Indication: HORMONE THERAPY
     Dosage: UNK
     Route: 048
     Dates: start: 19950101
  2. CHANTIX [Suspect]
     Indication: SMOKING CESSATION THERAPY
     Dosage: 0.5 MG, 1X/DAY
     Route: 048
     Dates: start: 20110305, end: 20110401

REACTIONS (2)
  - INFECTION [None]
  - DRUG INTERACTION [None]
